FAERS Safety Report 5254935-0 (Version None)
Quarter: 2007Q1

REPORT INFORMATION
  Report Type: 
  Country: None (occurrence: None)
  Receive Date: 20070228
  Receipt Date: 20070213
  Transmission Date: 20070707
  Serious: Yes (Hospitalization)
  Sender: FDA-Public Use
  Company Number: 2007S1001359

PATIENT
  Age: 50 Year
  Sex: Male

DRUGS (3)
  1. REBIF [Suspect]
     Indication: MULTIPLE SCLEROSIS
     Dosage: 44 UG; 3 TIMES PER WEEK; SUBCUTANEOUS
     Route: 058
     Dates: start: 20060808
  2. PHENYTEK [Suspect]
     Indication: CONVULSION
     Dosage: 200 MG; TWICE A DAY; ORAL
     Route: 048
     Dates: start: 20060101
  3. ANTIHYPERTENSIVES [Concomitant]

REACTIONS (4)
  - ANTICONVULSANT DRUG LEVEL ABOVE THERAPEUTIC [None]
  - DIPLOPIA [None]
  - FALL [None]
  - INJECTION SITE PAIN [None]
